FAERS Safety Report 8192817-5 (Version None)
Quarter: 2012Q1

REPORT INFORMATION
  Report Type: 
  Country: None (occurrence: None)
  Receive Date: 20120308
  Receipt Date: 20120305
  Transmission Date: 20120608
  Serious: No
  Sender: FDA-Public Use
  Company Number: US-PFIZER INC-2011054606

PATIENT
  Sex: Female
  Weight: 63 kg

DRUGS (4)
  1. LYRICA [Suspect]
     Indication: PAIN
     Dosage: 100 MG, 2X/DAY
     Dates: start: 20110101
  2. LYRICA [Suspect]
     Indication: NEUROPATHY PERIPHERAL
  3. DILTIAZEM [Concomitant]
     Indication: HYPERTENSION
     Dosage: UNK
  4. LOSARTAN [Concomitant]
     Indication: HYPERTENSION
     Dosage: UNK

REACTIONS (2)
  - ALOPECIA [None]
  - URINE ODOUR ABNORMAL [None]
